FAERS Safety Report 21863246 (Version 1)
Quarter: 2023Q1

REPORT INFORMATION
  Report Type: Report from Study
  Country: CH (occurrence: CH)
  Receive Date: 20230115
  Receipt Date: 20230115
  Transmission Date: 20230417
  Serious: Yes (Hospitalization)
  Sender: FDA-Public Use
  Company Number: CH-ABBVIE-4256328

PATIENT
  Age: 81 Year
  Sex: Female

DRUGS (4)
  1. CARBIDOPA\LEVODOPA [Suspect]
     Active Substance: CARBIDOPA\LEVODOPA
     Indication: Parkinson^s disease
     Dosage: MD: 5 ML, CRD: 2.5 ML, ED: 1 ML
     Route: 050
     Dates: start: 20221227, end: 20230106
  2. CARBIDOPA\LEVODOPA [Suspect]
     Active Substance: CARBIDOPA\LEVODOPA
     Dosage: MD: 5 ML, CRD: 2.5 ML, ED: 1 ML
     Route: 050
     Dates: start: 20230106
  3. CARBIDOPA\LEVODOPA [Suspect]
     Active Substance: CARBIDOPA\LEVODOPA
     Route: 050
     Dates: start: 20200127
  4. CARBIDOPA\LEVODOPA [Suspect]
     Active Substance: CARBIDOPA\LEVODOPA
     Dosage: MD: 5.5 ML, CRD: 2.3 ML, CRN: 0.0 ML, ED: 1.0 ML
     Route: 050
     Dates: start: 20211207, end: 20221227

REACTIONS (2)
  - Abscess [Not Recovered/Not Resolved]
  - Off label use [Not Recovered/Not Resolved]

NARRATIVE: CASE EVENT DATE: 20221201
